FAERS Safety Report 4778660-5 (Version None)
Quarter: 2005Q3

REPORT INFORMATION
  Report Type: 
  Country: None (occurrence: None)
  Receive Date: 20050926
  Receipt Date: 20050922
  Transmission Date: 20060218
  Serious: Yes (Other)
  Sender: FDA-Public Use
  Company Number: DE-GLAXOSMITHKLINE-D0047579A

PATIENT
  Sex: Male

DRUGS (1)
  1. VIANI [Suspect]
     Route: 055

REACTIONS (1)
  - ANGIONEUROTIC OEDEMA [None]
